FAERS Safety Report 9385221 (Version 2)
Quarter: 2013Q3

REPORT INFORMATION
  Report Type: Spontaneous
  Country: CA (occurrence: CA)
  Receive Date: 20130705
  Receipt Date: 20130718
  Transmission Date: 20140515
  Serious: Yes (Other)
  Sender: FDA-Public Use
  Company Number: CA-GLAXOSMITHKLINE-A1014645A

PATIENT
  Sex: Female

DRUGS (5)
  1. VOTRIENT [Suspect]
     Indication: SARCOMA
     Dosage: 800MG PER DAY
     Route: 048
     Dates: start: 20130202
  2. DOXORUBICIN [Suspect]
     Indication: PRODUCT USED FOR UNKNOWN INDICATION
     Route: 065
  3. HYPOGLYCEMIC [Concomitant]
  4. LASIX [Concomitant]
     Indication: OEDEMA PERIPHERAL
  5. MORPHINE [Concomitant]
     Indication: BACK PAIN

REACTIONS (8)
  - Stomatitis [Unknown]
  - Dry mouth [Unknown]
  - Back pain [Unknown]
  - Oral mucosal blistering [Not Recovered/Not Resolved]
  - Aphthous stomatitis [Unknown]
  - Malignant neoplasm progression [Not Recovered/Not Resolved]
  - Adverse drug reaction [Unknown]
  - Malaise [Unknown]
